FAERS Safety Report 22307929 (Version 1)
Quarter: 2023Q2

REPORT INFORMATION
  Report Type: Spontaneous
  Country: US (occurrence: US)
  Receive Date: 20230511
  Receipt Date: 20230511
  Transmission Date: 20230721
  Serious: No
  Sender: FDA-Public Use
  Company Number: US-Amarin Pharma, Inc.-2023AMR000055

PATIENT

DRUGS (2)
  1. VASCEPA [Suspect]
     Active Substance: ICOSAPENT ETHYL
     Indication: Arteriosclerosis
     Route: 048
  2. LIVALO [Concomitant]
     Active Substance: PITAVASTATIN CALCIUM
     Indication: Blood cholesterol abnormal

REACTIONS (8)
  - Dysphagia [Unknown]
  - Vomiting [Unknown]
  - Foreign body in throat [Unknown]
  - Heart rate increased [Unknown]
  - Hypertension [Unknown]
  - Circumstance or information capable of leading to medication error [Unknown]
  - Product label confusion [Unknown]
  - Product size issue [Unknown]

NARRATIVE: CASE EVENT DATE: 20230101
